FAERS Safety Report 7832245-2 (Version None)
Quarter: 2011Q4

REPORT INFORMATION
  Report Type: 
  Country: None (occurrence: None)
  Receive Date: 20111022
  Receipt Date: 20111005
  Transmission Date: 20120403
  Serious: Yes (Other)
  Sender: FDA-Public Use
  Company Number: US-BAYER-2011-052278

PATIENT
  Age: 40 Year
  Sex: Female
  Weight: 69 kg

DRUGS (9)
  1. XANAX [Concomitant]
     Dosage: 0.5 MG, PRN
     Route: 048
  2. NEXIUM [Concomitant]
     Dosage: 40 MG, QD
     Route: 048
  3. FLEXERIL [Concomitant]
     Dosage: 5 MG, PRN
     Route: 048
  4. DEPAKOTE ER [Concomitant]
     Indication: BIPOLAR DISORDER
  5. DROSPIRENONE AND ETHINYL ESTRADIOL [Suspect]
     Indication: OESTROGEN REPLACEMENT THERAPY
     Dosage: UNK
     Dates: start: 20090101, end: 20090101
  6. DEPAKOTE ER [Concomitant]
     Indication: CONVULSION
     Dosage: 500 MG, QD
     Route: 048
     Dates: start: 20080201, end: 20100501
  7. EFFEXOR XR [Concomitant]
     Indication: DEPRESSION
     Dosage: 75 MG, QD
     Route: 048
     Dates: start: 20090327, end: 20100508
  8. HYDROXYZINE [Concomitant]
     Dosage: 25 MG, PRN
     Route: 048
  9. NAPROXEN [Concomitant]
     Dosage: 500 MG, BID
     Route: 048

REACTIONS (4)
  - GALLBLADDER DISORDER [None]
  - PAIN [None]
  - INJURY [None]
  - BILIARY DYSKINESIA [None]
